FAERS Safety Report 8000358-0 (Version None)
Quarter: 2011Q4

REPORT INFORMATION
  Report Type: 
  Country: None (occurrence: None)
  Receive Date: 20111222
  Receipt Date: 20111213
  Transmission Date: 20120403
  Serious: Yes (Hospitalization)
  Sender: FDA-Public Use
  Company Number: US-BAYER-201021019NA

PATIENT
  Age: 23 Year
  Sex: Female
  Weight: 63.039 kg

DRUGS (6)
  1. TYLENOL W/ CODEINE NO. 3 [Concomitant]
  2. ZOFRAN [Concomitant]
  3. DROSPIRENONE AND ETHINYL ESTRADIOL [Suspect]
     Indication: PRODUCT USED FOR UNKNOWN INDICATION
  4. METHSCOPOLAMINE BROMIDE [Concomitant]
     Dosage: 5 MG, UNK
  5. YAZ [Suspect]
     Indication: PRODUCT USED FOR UNKNOWN INDICATION
     Route: 048
  6. YASMIN [Suspect]
     Indication: PRODUCT USED FOR UNKNOWN INDICATION
     Dosage: UNK
     Route: 048

REACTIONS (7)
  - EMOTIONAL DISTRESS [None]
  - PAIN [None]
  - ANHEDONIA [None]
  - ABDOMINAL PAIN UPPER [None]
  - INJURY [None]
  - CHOLECYSTITIS [None]
  - ANXIETY [None]
